FAERS Safety Report 14317268 (Version 1)
Quarter: 2017Q4

REPORT INFORMATION
  Report Type: Report from Study
  Country: TR (occurrence: TR)
  Receive Date: 20171222
  Receipt Date: 20171222
  Transmission Date: 20180321
  Serious: Yes (Death)
  Sender: FDA-Public Use
  Company Number: TR-ROCHE-2045463

PATIENT
  Age: 54 Year
  Sex: Male

DRUGS (12)
  1. VALACYCLOVIR [Concomitant]
     Active Substance: VALACYCLOVIR HYDROCHLORIDE
     Indication: PROPHYLAXIS
     Route: 048
  2. HEPARIN SODIUM. [Concomitant]
     Active Substance: HEPARIN SODIUM
     Indication: PROPHYLAXIS
     Route: 058
  3. MYCOPHENOLATE MOFETIL. [Suspect]
     Active Substance: MYCOPHENOLATE MOFETIL
     Indication: IMMUNOSUPPRESSION
     Route: 065
  4. PREDNISOLONE. [Suspect]
     Active Substance: PREDNISOLONE
     Indication: IMMUNOSUPPRESSION
     Route: 065
     Dates: start: 20130823, end: 20130830
  5. ANTI-THYMOCYTE GLOBULIN (RABBIT) NOS [Concomitant]
     Active Substance: LAPINE T-LYMPHOCYTE IMMUNE GLOBULIN
     Route: 065
  6. PREDNISOLONE. [Suspect]
     Active Substance: PREDNISOLONE
     Route: 065
     Dates: start: 20130830, end: 2014
  7. PROGRAF [Suspect]
     Active Substance: TACROLIMUS\TACROLIMUS ANHYDROUS
     Indication: IMMUNOSUPPRESSION
     Dosage: TAPERED TO 7-10 NG/ML 6 MONTHS POSTOPERATIVELY
     Route: 065
     Dates: start: 2013
  8. TACROLIMUS. [Concomitant]
     Active Substance: TACROLIMUS
     Route: 061
  9. PYRIMETHAMINE/SULFADOXINE [Concomitant]
     Active Substance: PYRIMETHAMINE\SULFADOXINE
     Indication: PROPHYLAXIS
     Route: 065
  10. PREDNISOLONE. [Suspect]
     Active Substance: PREDNISOLONE
     Route: 065
     Dates: start: 2014
  11. TACROLIMUS. [Concomitant]
     Active Substance: TACROLIMUS
     Indication: SKIN GRAFT REJECTION
     Dosage: INCREASE IN TACROLIMUS DRUG DOSAGE
     Route: 061
  12. NYSTATIN. [Concomitant]
     Active Substance: NYSTATIN
     Indication: PROPHYLAXIS
     Route: 048

REACTIONS (4)
  - Post transplant lymphoproliferative disorder [Fatal]
  - Squamous cell carcinoma [Fatal]
  - Bronchopulmonary aspergillosis [Fatal]
  - Cerebral aspergillosis [Fatal]
